FAERS Safety Report 4939874-4 (Version None)
Quarter: 2006Q1

REPORT INFORMATION
  Report Type: 
  Country: None (occurrence: None)
  Receive Date: 20060310
  Receipt Date: 20060306
  Transmission Date: 20060701
  Serious: Yes (Disabling, Other)
  Sender: FDA-Public Use
  Company Number: GB-AVENTIS-200612137GDDC

PATIENT
  Age: 28 Year
  Sex: Female
  Weight: 58 kg

DRUGS (4)
  1. CLOMIPHENE [Suspect]
     Indication: ANOVULATORY CYCLE
     Route: 048
     Dates: start: 20060128, end: 20060129
  2. IBUPROFEN [Concomitant]
     Indication: HEADACHE
     Route: 048
  3. ECHINACEA [Concomitant]
     Indication: INFLUENZA IMMUNISATION
     Route: 048
     Dates: start: 20051229, end: 20060126
  4. MULTIVITAMIN [Concomitant]
     Route: 048

REACTIONS (8)
  - ANXIETY [None]
  - CHILLS [None]
  - DEPRESSION [None]
  - DIZZINESS [None]
  - HYPERHIDROSIS [None]
  - PANIC ATTACK [None]
  - SUICIDAL IDEATION [None]
  - SYNCOPE [None]
